FAERS Safety Report 8601703-5 (Version None)
Quarter: 2012Q3

REPORT INFORMATION
  Report Type: 
  Country: None (occurrence: None)
  Receive Date: 20120817
  Receipt Date: 20120208
  Transmission Date: 20120928
  Serious: Yes (Other)
  Sender: FDA-Public Use
  Company Number: US-BRISTOL-MYERS SQUIBB COMPANY-16369688

PATIENT
  Age: 54 Year
  Sex: Male

DRUGS (1)
  1. SPRYCEL [Suspect]
     Indication: CHRONIC MYELOID LEUKAEMIA
     Dosage: 1 DF= TWO 70MG TABS.
     Dates: end: 20111202

REACTIONS (5)
  - PLEURAL EFFUSION [None]
  - ERYTHEMA [None]
  - PNEUMONIA [None]
  - HEADACHE [None]
  - EXFOLIATIVE RASH [None]
